FAERS Safety Report 21645112 (Version 1)
Quarter: 2022Q4

REPORT INFORMATION
  Report Type: Spontaneous
  Country: DK (occurrence: DK)
  Receive Date: 20221125
  Receipt Date: 20221125
  Transmission Date: 20230113
  Serious: Yes (Hospitalization)
  Sender: FDA-Public Use
  Company Number: None

PATIENT
  Age: 41 Year
  Sex: Male

DRUGS (1)
  1. ROSUVASTATIN [Suspect]
     Active Substance: ROSUVASTATIN
     Indication: Hypercholesterolaemia
     Dosage: STRENGTH AND DOSE: 10 MG, FREQ TIME 1 DAY
     Dates: start: 202205, end: 2022

REACTIONS (4)
  - Myalgia [Recovered/Resolved]
  - Depressed mood [Recovered/Resolved]
  - Extremity necrosis [Recovered/Resolved]
  - Libido decreased [Recovered/Resolved]

NARRATIVE: CASE EVENT DATE: 20220101
